FAERS Safety Report 7246202-0 (Version None)
Quarter: 2011Q1

REPORT INFORMATION
  Report Type: 
  Country: None (occurrence: None)
  Receive Date: 20110126
  Receipt Date: 20110117
  Transmission Date: 20110831
  Serious: Yes (Death, Hospitalization)
  Sender: FDA-Public Use
  Company Number: B0694435A

PATIENT
  Sex: Male
  Weight: 71 kg

DRUGS (7)
  1. DIGOXIN [Concomitant]
     Dosage: .25MG PER DAY
     Route: 048
     Dates: end: 20100418
  2. ADALAT CC [Concomitant]
     Dosage: 10MG PER DAY
     Route: 048
     Dates: end: 20100418
  3. WARFARIN [Concomitant]
     Dosage: 3.5MG PER DAY
     Route: 048
     Dates: end: 20100418
  4. SERETIDE [Suspect]
     Indication: EMPHYSEMA
     Dosage: 500MCG PER DAY
     Route: 055
     Dates: start: 20091110, end: 20100418
  5. MICARDIS [Concomitant]
     Dosage: 40MG PER DAY
     Route: 048
     Dates: end: 20100418
  6. ASPIRIN [Concomitant]
     Dosage: 100MG PER DAY
     Route: 048
     Dates: end: 20100418
  7. SPIRIVA [Concomitant]
     Indication: EMPHYSEMA
     Dosage: 18MCG PER DAY
     Route: 055
     Dates: start: 20091110, end: 20100418

REACTIONS (2)
  - ROAD TRAFFIC ACCIDENT [None]
  - PNEUMONIA BACTERIAL [None]
